FAERS Safety Report 12254632 (Version 1)
Quarter: 2016Q2

REPORT INFORMATION
  Report Type: Spontaneous
  Country: US (occurrence: US)
  Receive Date: 20160411
  Receipt Date: 20160411
  Transmission Date: 20160815
  Serious: No
  Sender: FDA-Public Use
  Company Number: US-SA-2015SA050775

PATIENT
  Age: 85 Year
  Sex: Female

DRUGS (1)
  1. ALLEGRA-D [Suspect]
     Active Substance: FEXOFENADINE\PSEUDOEPHEDRINE
     Indication: NASAL CONGESTION
     Dosage: TAKEN FROM: WEEK AGO
     Route: 048

REACTIONS (3)
  - Nasal dryness [Unknown]
  - Drug ineffective [Unknown]
  - Insomnia [Unknown]
